FAERS Safety Report 5371341-9 (Version None)
Quarter: 2007Q2

REPORT INFORMATION
  Report Type: 
  Country: None (occurrence: None)
  Receive Date: 20070615
  Receipt Date: 20060717
  Transmission Date: 20071010
  Serious: Yes (Other)
  Sender: FDA-Public Use
  Company Number: 200615980US

PATIENT
  Age: 81 Year
  Sex: Female

DRUGS (8)
  1. LANTUS [Suspect]
     Indication: DIABETES MELLITUS NON-INSULIN-DEPENDENT
     Dosage: 21 U QAM
  2. PIOGLITAZONE [Concomitant]
  3. GLIMEPIRIDE [Concomitant]
  4. SIMVASTATIN, EZETIMIBE (VYTORIN) [Concomitant]
  5. ASPIRIN [Concomitant]
  6. NITROFURANTOIN (MACRODANTIN) [Concomitant]
  7. CEPHALEXIN [Concomitant]
  8. MULTIVITAMIN [Concomitant]

REACTIONS (4)
  - BLOOD GLUCOSE INCREASED [None]
  - CYSTITIS [None]
  - HYPOGLYCAEMIC SEIZURE [None]
  - INCOHERENT [None]
